FAERS Safety Report 9523981 (Version 1)
Quarter: 2013Q3

REPORT INFORMATION
  Report Type: Spontaneous
  Country: US (occurrence: None)
  Receive Date: 20130912
  Receipt Date: 20130912
  Transmission Date: 20140515
  Serious: Yes (Other)
  Sender: FDA-Public Use
  Company Number: None

PATIENT
  Age: 29 Year
  Sex: Male
  Weight: 110.22 kg

DRUGS (7)
  1. SPRYCEL [Suspect]
     Indication: LEUKAEMIA
     Dosage: 70MG  BID  ORAL
     Route: 048
     Dates: start: 20120905, end: 20130911
  2. ATORVASTATIN [Concomitant]
  3. DEXAMETHASONE [Concomitant]
  4. VICODIN [Concomitant]
  5. GABAPENTIN [Concomitant]
  6. ONDANSETRON [Concomitant]
  7. LEVITIRACETAM [Concomitant]

REACTIONS (1)
  - Drug ineffective [None]
